FAERS Safety Report 20911176 (Version 1)
Quarter: 2022Q2

REPORT INFORMATION
  Report Type: Spontaneous
  Country: US (occurrence: US)
  Receive Date: 20220603
  Receipt Date: 20220603
  Transmission Date: 20220720
  Serious: Yes (Hospitalization, Other)
  Sender: FDA-Public Use
  Company Number: US-MSNLABS-2022MSNLIT00569

PATIENT

DRUGS (5)
  1. ERLOTINIB [Suspect]
     Active Substance: ERLOTINIB
     Indication: Non-small cell lung cancer
     Dosage: DAILY
     Route: 065
  2. CARBOPLATIN [Concomitant]
     Active Substance: CARBOPLATIN
     Indication: Non-small cell lung cancer
     Route: 065
  3. CARBOPLATIN [Concomitant]
     Active Substance: CARBOPLATIN
  4. PEMETREXED [Concomitant]
     Active Substance: PEMETREXED
     Indication: Non-small cell lung cancer
     Route: 065
  5. PEMETREXED [Concomitant]
     Active Substance: PEMETREXED

REACTIONS (7)
  - Therapy non-responder [Unknown]
  - Disease progression [Unknown]
  - Facial paralysis [Unknown]
  - Dysarthria [Unknown]
  - Metastasis [Recovering/Resolving]
  - Pulmonary mass [Recovering/Resolving]
  - Drug resistance [Unknown]
